FAERS Safety Report 10215045 (Version 1)
Quarter: 2014Q2

REPORT INFORMATION
  Report Type: Spontaneous
  Country: CN (occurrence: CN)
  Receive Date: 20140603
  Receipt Date: 20140603
  Transmission Date: 20141212
  Serious: Yes (Other)
  Sender: FDA-Public Use
  Company Number: CN-ABBVIE-14P-035-1243955-00

PATIENT
  Age: 34 Year
  Sex: Female

DRUGS (1)
  1. ENANTONE [Suspect]
     Indication: ADENOMYOSIS
     Route: 058
     Dates: start: 20120806, end: 20121101

REACTIONS (2)
  - Ectopic pregnancy [Unknown]
  - Pregnancy [Unknown]
